FAERS Safety Report 6017433-2 (Version None)
Quarter: 2008Q4

REPORT INFORMATION
  Report Type: 
  Country: None (occurrence: None)
  Receive Date: 20081219
  Receipt Date: 20081204
  Transmission Date: 20090506
  Serious: Yes (Other)
  Sender: FDA-Public Use
  Company Number: 2008S1021609

PATIENT
  Age: 78 Year
  Sex: Female

DRUGS (5)
  1. ATENOLOL [Suspect]
     Indication: HYPERTENSION
     Dosage: 25 MG
     Dates: start: 20080701, end: 20081001
  2. CALCICHEW [Concomitant]
  3. FOSAMAX [Concomitant]
  4. FYBOGEL [Concomitant]
  5. ZANIDIP [Concomitant]

REACTIONS (1)
  - DRUG ERUPTION [None]
